FAERS Safety Report 18537281 (Version 1)
Quarter: 2020Q4

REPORT INFORMATION
  Report Type: Spontaneous
  Country: CN (occurrence: CN)
  Receive Date: 20201124
  Receipt Date: 20201124
  Transmission Date: 20210114
  Serious: Yes (Other)
  Sender: FDA-Public Use
  Company Number: CN-009507513-2010CHN008656

PATIENT
  Age: 64 Year
  Sex: Female

DRUGS (2)
  1. CLONAZEPAM. [Interacting]
     Active Substance: CLONAZEPAM
     Dosage: UNK
  2. REMERON [Suspect]
     Active Substance: MIRTAZAPINE
     Indication: POOR QUALITY SLEEP
     Dosage: 0.5 DOSAGE FORM (1/2 TABLET); HALF AN HOUR BEFORE GOING TO BED (HS)
     Route: 048
     Dates: start: 2004

REACTIONS (6)
  - Product use in unapproved indication [Unknown]
  - Diarrhoea [Unknown]
  - Bronchiectasis [Unknown]
  - Drug effective for unapproved indication [Unknown]
  - Flatulence [Unknown]
  - Labelled drug-drug interaction medication error [Unknown]

NARRATIVE: CASE EVENT DATE: 2004
